FAERS Safety Report 6426887-9 (Version None)
Quarter: 2009Q4

REPORT INFORMATION
  Report Type: 
  Country: None (occurrence: None)
  Receive Date: 20091104
  Receipt Date: 20091027
  Transmission Date: 20100525
  Serious: No
  Sender: FDA-Public Use
  Company Number: US-B.I. PHARMACEUTICALS,INC./RIDGEFIELD-2009-BP-12539BP

PATIENT
  Age: 52 Year
  Sex: Female

DRUGS (3)
  1. MICARDIS [Suspect]
     Indication: HYPERTENSION
     Dosage: 40 MG
     Route: 048
     Dates: start: 20090701
  2. XANAX [Concomitant]
     Indication: ANXIETY
  3. ANTIDEPRESSANTS [Concomitant]

REACTIONS (2)
  - BLOOD PRESSURE ABNORMAL [None]
  - INSOMNIA [None]
